FAERS Safety Report 16747382 (Version 1)
Quarter: 2019Q3

REPORT INFORMATION
  Report Type: Report from Study
  Country: US (occurrence: US)
  Receive Date: 20190827
  Receipt Date: 20190827
  Transmission Date: 20191005
  Serious: Yes (Hospitalization)
  Sender: FDA-Public Use
  Company Number: US-ACTELION-A-NJ2019-188040

PATIENT
  Age: 50 Year
  Sex: Male

DRUGS (1)
  1. OPSUMIT [Suspect]
     Active Substance: MACITENTAN
     Indication: PULMONARY HYPERTENSION
     Dosage: 10 MG, QD
     Route: 048
     Dates: start: 20171017

REACTIONS (14)
  - Product dose omission [Unknown]
  - Pulmonary hypertension [Unknown]
  - Oedema peripheral [Recovering/Resolving]
  - Right ventricular failure [Unknown]
  - Abdominal cavity drainage [Unknown]
  - Gait disturbance [Unknown]
  - Back pain [Unknown]
  - Spinal pain [Unknown]
  - Abdominal distension [Unknown]
  - Radicular pain [Unknown]
  - Weight increased [Unknown]
  - Hypoaesthesia [Unknown]
  - Brain natriuretic peptide increased [Unknown]
  - Pain [Unknown]

NARRATIVE: CASE EVENT DATE: 20190304
